FAERS Safety Report 23520873 (Version 2)
Quarter: 2024Q1

REPORT INFORMATION
  Report Type: Spontaneous
  Country: US (occurrence: US)
  Receive Date: 20240214
  Receipt Date: 20240229
  Transmission Date: 20240409
  Serious: Yes (Other)
  Sender: FDA-Public Use
  Company Number: US-Accord-404906

PATIENT
  Age: 86 Year
  Sex: Male
  Weight: 78.47 kg

DRUGS (1)
  1. DALFAMPRIDINE [Suspect]
     Active Substance: DALFAMPRIDINE
     Indication: Hereditary ataxia
     Dosage: EXTENDED-RELEASE, TWICE DAILY
     Route: 048
     Dates: start: 202009

REACTIONS (2)
  - Rash [Not Recovered/Not Resolved]
  - Off label use [Unknown]

NARRATIVE: CASE EVENT DATE: 20240101
